FAERS Safety Report 12232393 (Version 1)
Quarter: 2016Q2

REPORT INFORMATION
  Report Type: Spontaneous
  Country: CA (occurrence: CA)
  Receive Date: 20160401
  Receipt Date: 20160401
  Transmission Date: 20160815
  Serious: Yes (Other)
  Sender: FDA-Public Use
  Company Number: CA-BAUSCH-BL-2016-006731

PATIENT
  Sex: Female
  Weight: 79.45 kg

DRUGS (1)
  1. FLUORESCEIN SODIUM AND BENOXINATE HYDROCHLORIDE OPHTHALMIC SOLUTION US [Suspect]
     Active Substance: BENOXINATE HYDROCHLORIDE\FLUORESCEIN SODIUM
     Indication: VISUAL IMPAIRMENT
     Route: 065
     Dates: start: 20160307

REACTIONS (3)
  - Loss of consciousness [Recovered/Resolved]
  - Vomiting [Recovering/Resolving]
  - Fatigue [Recovered/Resolved]
